FAERS Safety Report 23158371 (Version 1)
Quarter: 2023Q4

REPORT INFORMATION
  Report Type: Spontaneous
  Country: US (occurrence: US)
  Receive Date: 20231108
  Receipt Date: 20231108
  Transmission Date: 20240110
  Serious: No
  Sender: FDA-Public Use
  Company Number: US-AMNEAL PHARMACEUTICALS-2022-AMRX-03383

PATIENT
  Age: 15 Year
  Sex: Female

DRUGS (1)
  1. ISOTRETINOIN [Suspect]
     Active Substance: ISOTRETINOIN
     Indication: Product used for unknown indication
     Dosage: UNK
     Route: 065
     Dates: start: 20220503

REACTIONS (10)
  - Papule [Unknown]
  - Oral discomfort [Recovered/Resolved]
  - Dermatitis contact [Unknown]
  - Erythema [Unknown]
  - Post inflammatory pigmentation change [Unknown]
  - Nasal dryness [Recovered/Resolved]
  - Dry skin [Recovered/Resolved]
  - Scar [Unknown]
  - Chapped lips [Unknown]
  - Blood cholesterol increased [Unknown]

NARRATIVE: CASE EVENT DATE: 20220606
